FAERS Safety Report 5932170-8 (Version None)
Quarter: 2008Q4

REPORT INFORMATION
  Report Type: 
  Country: None (occurrence: None)
  Receive Date: 20081022
  Receipt Date: 20081006
  Transmission Date: 20090506
  Serious: Yes (Hospitalization)
  Sender: FDA-Public Use
  Company Number: DE-1167154

PATIENT
  Age: 66 Year
  Sex: Female

DRUGS (4)
  1. TRAVATAN [Suspect]
     Indication: GLAUCOMA
     Dosage: OU QD
     Route: 047
     Dates: start: 20080101, end: 20080903
  2. AZOPT [Suspect]
     Route: 047
  3. LEVOTHYROXINE SODIUM [Concomitant]
  4. ESTRADERM [Concomitant]

REACTIONS (11)
  - DIZZINESS [None]
  - DRUG INEFFECTIVE [None]
  - DRUG INTOLERANCE [None]
  - DYSPEPSIA [None]
  - EYE IRRITATION [None]
  - GASTRIC DISORDER [None]
  - GROWTH OF EYELASHES [None]
  - HAIR GROWTH ABNORMAL [None]
  - NAUSEA [None]
  - SKIN BURNING SENSATION [None]
  - SKIN HYPERPIGMENTATION [None]
